FAERS Safety Report 6259906-3 (Version None)
Quarter: 2009Q3

REPORT INFORMATION
  Report Type: 
  Country: None (occurrence: None)
  Receive Date: 20090708
  Receipt Date: 20090629
  Transmission Date: 20100115
  Serious: Yes (Hospitalization, Other)
  Sender: FDA-Public Use
  Company Number: PHEH2009US06951

PATIENT
  Sex: Female
  Weight: 66.213 kg

DRUGS (7)
  1. RECLAST [Suspect]
     Indication: OSTEOPOROSIS
     Dosage: 5 MG, YEARLY
     Dates: start: 20090611, end: 20090611
  2. RECLAST [Suspect]
     Dosage: 5 MG, YEARLY
     Route: 042
     Dates: start: 20080528, end: 20080528
  3. LOTREL [Concomitant]
     Indication: HYPERTENSION
     Dosage: 10/20, QD
  4. PAXIL [Concomitant]
     Indication: DEPRESSION
     Dosage: 25 UNK, QD
  5. HYDROCHLOROTHIAZIDE [Concomitant]
     Indication: HYPERTENSION
     Dosage: 25 UNK, QD
  6. GLUCOPHAGE [Concomitant]
     Indication: DIABETES MELLITUS
     Dosage: 1000 UNK, BID
  7. TRAMADOL HCL [Concomitant]
     Indication: PAIN
     Dosage: 100 UNK, TID PRN

REACTIONS (10)
  - ASTHENIA [None]
  - BLOOD CALCIUM INCREASED [None]
  - CHEST PAIN [None]
  - CHILLS [None]
  - DEHYDRATION [None]
  - DIZZINESS [None]
  - FATIGUE [None]
  - GAIT DISTURBANCE [None]
  - PYREXIA [None]
  - RENAL FAILURE ACUTE [None]
